FAERS Safety Report 6021973-X (Version None)
Quarter: 2008Q4

REPORT INFORMATION
  Report Type: 
  Country: None (occurrence: None)
  Receive Date: 20081223
  Receipt Date: 20081212
  Transmission Date: 20090506
  Serious: Yes (Hospitalization)
  Sender: FDA-Public Use
  Company Number: 230780K08USA

PATIENT
  Age: 61 Year
  Sex: Female

DRUGS (2)
  1. REBIF [Suspect]
     Indication: MULTIPLE SCLEROSIS
     Dosage: 44 NOT REPORTED, 3 IN 1 WEEKS, SUBCUTANEOUS
     Route: 058
     Dates: start: 20071204, end: 20080101
  2. UNSPECIFIED OVER THE COUNTER PREMEDICATION (ALL OTHER THERAPEUTIC PROD [Concomitant]

REACTIONS (2)
  - ELECTROLYTE IMBALANCE [None]
  - MYOCARDIAL INFARCTION [None]
